FAERS Safety Report 17717835 (Version 1)
Quarter: 2020Q2

REPORT INFORMATION
  Report Type: Spontaneous
  Country: CH (occurrence: CH)
  Receive Date: 20200428
  Receipt Date: 20200428
  Transmission Date: 20200714
  Serious: Yes (Hospitalization)
  Sender: FDA-Public Use
  Company Number: CH-ROCHE-2588227

PATIENT
  Age: 51 Year
  Sex: Male

DRUGS (4)
  1. BRUFEN [IBUPROFEN] [Suspect]
     Active Substance: IBUPROFEN
     Indication: PRODUCT USED FOR UNKNOWN INDICATION
     Dosage: EXACT DOSE TAKEN UNKNOWN, AN EMPTY BOX OF 6 BRUFEN 600 MG TABLETS WAS FOUND
     Route: 048
     Dates: start: 20200304, end: 20200304
  2. RIVOTRIL [Suspect]
     Active Substance: CLONAZEPAM
     Indication: PRODUCT USED FOR UNKNOWN INDICATION
     Dosage: EXACT DOSE TAKEN UNKNOWN, AN EMPTY BOX OF 10 RIVOTRIL 0.5 MG TABLETS WAS FOUND
     Route: 048
     Dates: start: 20200304, end: 20200304
  3. VASCORD [AMLODIPINE BESILATE;OLMESARTAN MEDOXOMIL] [Suspect]
     Active Substance: AMLODIPINE BESYLATE\OLMESARTAN MEDOXOMIL
     Indication: PRODUCT USED FOR UNKNOWN INDICATION
     Dosage: EXACT DOSE TAKEN UNKNOWN, AN EMPTY BOX OF 43 VASCORD HCT 40/10/12.5 MG TABLETS WAS FOUND
     Route: 048
     Dates: start: 20200304, end: 20200304
  4. STILNOX [Suspect]
     Active Substance: ZOLPIDEM TARTRATE
     Indication: PRODUCT USED FOR UNKNOWN INDICATION
     Dosage: EXACT DOSE TAKEN UNKNOWN, AN EMPTY BOX OF 10 STILNOX 10 MG TABLETS WAS FOUND
     Route: 048
     Dates: start: 20200304, end: 20200304

REACTIONS (6)
  - Somnolence [Recovered/Resolved]
  - Suicide attempt [Recovered/Resolved]
  - Disorientation [Recovered/Resolved]
  - Intentional overdose [Unknown]
  - Loss of consciousness [Recovered/Resolved]
  - Hypotension [Recovered/Resolved]

NARRATIVE: CASE EVENT DATE: 20200304
